FAERS Safety Report 4616715-6 (Version None)
Quarter: 2005Q1

REPORT INFORMATION
  Report Type: 
  Country: None (occurrence: None)
  Receive Date: 20050321
  Receipt Date: 20050310
  Transmission Date: 20050727
  Serious: Yes (Death)
  Sender: FDA-Public Use
  Company Number: 2005PK00405

PATIENT
  Age: 17 Year
  Sex: Male

DRUGS (2)
  1. SEROQUEL [Suspect]
     Dosage: 400 MG BID PO
     Route: 048
  2. SEROQUEL [Suspect]
     Dosage: 6200 MG ONCE PO
     Route: 048
     Dates: start: 20050308

REACTIONS (3)
  - ASPIRATION [None]
  - COMPLETED SUICIDE [None]
  - OVERDOSE [None]
